FAERS Safety Report 7771398-1 (Version None)
Quarter: 2011Q3

REPORT INFORMATION
  Report Type: 
  Country: None (occurrence: None)
  Receive Date: 20110922
  Receipt Date: 20100527
  Transmission Date: 20111222
  Serious: No
  Sender: FDA-Public Use
  Company Number: US-ASTRAZENECA-2010SE38627

PATIENT
  Sex: Female

DRUGS (7)
  1. PAROXETINE HCL [Concomitant]
     Dosage: 20-30 MG
     Dates: start: 20040517
  2. SEROQUEL [Suspect]
     Dosage: 100-300 MG
     Route: 048
     Dates: start: 20040723
  3. AMBIEN [Concomitant]
     Dates: start: 20040324
  4. AVALIDE [Concomitant]
     Dosage: 300-12.5 MG
     Dates: start: 20040305
  5. AVANDAMET [Concomitant]
     Dosage: 4MG/500 MG
     Dates: start: 20031220
  6. NOVOLOG MIX 70/30 [Concomitant]
     Dates: start: 20040528
  7. ZOCOR [Concomitant]
     Dates: start: 20040305

REACTIONS (1)
  - ILL-DEFINED DISORDER [None]
